FAERS Safety Report 9023896 (Version 9)
Quarter: 2013Q3

REPORT INFORMATION
  Report Type: Spontaneous
  Country: US (occurrence: US)
  Receive Date: 20130121
  Receipt Date: 20130821
  Transmission Date: 20140515
  Serious: No
  Sender: FDA-Public Use
  Company Number: US-PFIZER INC-2013018266

PATIENT
  Age: 65 Year
  Sex: Male
  Weight: 78.01 kg

DRUGS (3)
  1. INLYTA [Suspect]
     Indication: RENAL CANCER
     Dosage: 5 MG, 2X/DAY
     Dates: start: 20130103
  2. INLYTA [Suspect]
     Dosage: 1MG-3MG AT AM DOSE, 3MG AT PM DOSE
     Dates: start: 20130103
  3. INLYTA [Suspect]
     Dosage: 3 MG, 2X/DAY (1 MG, 3 PILLS TWICE DAILY)
     Dates: start: 20130625

REACTIONS (27)
  - Disease progression [Unknown]
  - Renal cancer [Unknown]
  - Hypertension [Not Recovered/Not Resolved]
  - Asthenia [Recovering/Resolving]
  - Hypothyroidism [Unknown]
  - Platelet count decreased [Unknown]
  - Gingival pain [Unknown]
  - Nausea [Unknown]
  - Dysphonia [Not Recovered/Not Resolved]
  - Weight decreased [Unknown]
  - Dry skin [Unknown]
  - Epistaxis [Unknown]
  - Sinus disorder [Unknown]
  - Cough [Unknown]
  - Hyperkeratosis [Unknown]
  - Pain in extremity [Unknown]
  - Hypersomnia [Unknown]
  - Constipation [Recovered/Resolved]
  - Diarrhoea [Unknown]
  - Protein urine present [Not Recovered/Not Resolved]
  - Aphthous stomatitis [Not Recovered/Not Resolved]
  - Fatigue [Not Recovered/Not Resolved]
  - Appetite disorder [Unknown]
  - Dysphonia [Not Recovered/Not Resolved]
  - Abdominal pain upper [Unknown]
  - Hunger [Unknown]
  - Neuralgia [Unknown]
